FAERS Safety Report 5514557-0 (Version None)
Quarter: 2007Q4

REPORT INFORMATION
  Report Type: 
  Country: None (occurrence: None)
  Receive Date: 20071113
  Receipt Date: 20071112
  Transmission Date: 20080405
  Serious: Yes (Life-Threatening, Hospitalization, Disabling)
  Sender: FDA-Public Use
  Company Number: A0694198A

PATIENT
  Sex: Female

DRUGS (5)
  1. LAMICTAL [Suspect]
     Indication: BIPOLAR DISORDER
     Route: 048
     Dates: start: 20061010
  2. CLONAZEPAM [Concomitant]
     Dates: end: 20060929
  3. BENZTROPINE [Concomitant]
     Dates: start: 20060911, end: 20061004
  4. ZINC [Concomitant]
  5. UNSPECIFIED MEDICATIONS [Concomitant]
     Dates: end: 20061004

REACTIONS (29)
  - ADVERSE EVENT [None]
  - BACTERIAL INFECTION [None]
  - BLINDNESS [None]
  - BLISTER [None]
  - CHEST PAIN [None]
  - COMA [None]
  - DYSPHAGIA [None]
  - DYSPNOEA [None]
  - EMOTIONAL DISTRESS [None]
  - EYE IRRITATION [None]
  - HEAD INJURY [None]
  - INJURY [None]
  - INJURY CORNEAL [None]
  - LUNG INFECTION [None]
  - MOUTH ULCERATION [None]
  - ORAL MUCOSAL BLISTERING [None]
  - PAIN [None]
  - PHARYNGEAL INFLAMMATION [None]
  - PHARYNGEAL OEDEMA [None]
  - RASH [None]
  - RASH MACULAR [None]
  - SCAR [None]
  - SEPSIS [None]
  - SKIN BURNING SENSATION [None]
  - SKIN EXFOLIATION [None]
  - STEVENS-JOHNSON SYNDROME [None]
  - THERMAL BURN [None]
  - THROAT IRRITATION [None]
  - TOXIC EPIDERMAL NECROLYSIS [None]
